FAERS Safety Report 14405123 (Version 1)
Quarter: 2018Q1

REPORT INFORMATION
  Report Type: Spontaneous
  Country: US (occurrence: US)
  Receive Date: 20180118
  Receipt Date: 20180118
  Transmission Date: 20180509
  Serious: No
  Sender: FDA-Public Use
  Company Number: US-JNJFOC-20171210841

PATIENT
  Age: 89 Year
  Sex: Female
  Weight: 52.16 kg

DRUGS (2)
  1. GABAPENTIN. [Concomitant]
     Active Substance: GABAPENTIN
     Indication: NERVE INJURY
     Route: 065
  2. KETOCONAZOLE. [Suspect]
     Active Substance: KETOCONAZOLE
     Indication: PRODUCT USED FOR UNKNOWN INDICATION
     Route: 061
     Dates: start: 20171202, end: 20171202

REACTIONS (3)
  - Skin mass [Not Recovered/Not Resolved]
  - Rash macular [Unknown]
  - Burning sensation [Unknown]

NARRATIVE: CASE EVENT DATE: 20171204
